FAERS Safety Report 5153962-1 (Version None)
Quarter: 2006Q4

REPORT INFORMATION
  Report Type: 
  Country: None (occurrence: None)
  Receive Date: 20061120
  Receipt Date: 20061018
  Transmission Date: 20070319
  Serious: Yes (Other)
  Sender: FDA-Public Use
  Company Number: AU-ROCHE-467851

PATIENT
  Age: 80 Year
  Sex: Male
  Weight: 86 kg

DRUGS (6)
  1. XENICAL [Suspect]
     Indication: DRUG USE FOR UNKNOWN INDICATION
     Route: 065
  2. TEGRETOL [Concomitant]
     Route: 048
  3. UNSPECIFIED DRUG [Concomitant]
     Dosage: DRUG REPORTED AS NORRASE. DOSAGE REIGMEN REPORTED AS M.
     Route: 048
  4. UNSPECIFIED DRUG [Concomitant]
     Dosage: DRUG NAME REPORTED AS ZIMSTAT, DOSING REGIMEN REPORTED AS N.
     Route: 048
  5. SOLPRIN [Concomitant]
     Dosage: STRENGTH REPORTED AS 1/2. DOSAGE REGIMEN AS M.
     Route: 048
  6. FISH OIL [Concomitant]
     Route: 048

REACTIONS (3)
  - HEADACHE [None]
  - HEART RATE IRREGULAR [None]
  - PALPITATIONS [None]
